FAERS Safety Report 7380492-9 (Version None)
Quarter: 2011Q1

REPORT INFORMATION
  Report Type: 
  Country: None (occurrence: None)
  Receive Date: 20110329
  Receipt Date: 20110315
  Transmission Date: 20110831
  Serious: No
  Sender: FDA-Public Use
  Company Number: US-CELGENEUS-163-20785-11023181

PATIENT
  Sex: Male

DRUGS (4)
  1. THALOMID [Suspect]
     Indication: MANTLE CELL LYMPHOMA
     Dosage: 400 MILLIGRAM
     Route: 048
     Dates: start: 20101001
  2. THALOMID [Suspect]
     Dosage: 200MG-400MG
     Route: 048
     Dates: start: 20050401
  3. RITUXAN [Suspect]
     Indication: MANTLE CELL LYMPHOMA
     Route: 065
  4. POLYGAM S/D [Concomitant]
     Route: 051

REACTIONS (4)
  - NEUROPATHY PERIPHERAL [None]
  - MANTLE CELL LYMPHOMA [None]
  - FALL [None]
  - ASTHENIA [None]
